FAERS Safety Report 16507715 (Version 1)
Quarter: 2019Q3

REPORT INFORMATION
  Report Type: Spontaneous
  Country: FR (occurrence: FR)
  Receive Date: 20190701
  Receipt Date: 20190701
  Transmission Date: 20191004
  Serious: Yes (Hospitalization)
  Sender: FDA-Public Use
  Company Number: FR-MYLANLABS-2019M1059895

PATIENT
  Age: 59 Year
  Sex: Male
  Weight: 96 kg

DRUGS (9)
  1. FORMOTEROL [Concomitant]
     Active Substance: FORMOTEROL
     Dosage: 2 DOSAGE FORM, QD
     Route: 055
  2. TAHOR [Concomitant]
     Active Substance: ATORVASTATIN CALCIUM
     Dosage: 1 DOSAGE FORM, QD
     Route: 048
  3. LISINOPRIL. [Suspect]
     Active Substance: LISINOPRIL
     Indication: HYPERTENSION
     Route: 048
     Dates: end: 20171128
  4. HYDROCHLOROTHIAZIDE. [Suspect]
     Active Substance: HYDROCHLOROTHIAZIDE
     Indication: HYPERTENSION
     Dosage: 12.5 MILLIGRAM, QD
     Route: 048
     Dates: end: 20171128
  5. VENTOLINE                          /00139501/ [Concomitant]
     Active Substance: ALBUTEROL
     Dosage: UNK
  6. MORPHINE [Concomitant]
     Active Substance: MORPHINE
  7. BECLOMETHASONE DIPROPIONATE        /00212601/ [Concomitant]
     Active Substance: BECLOMETHASONE
     Dosage: 2 DOSAGE FORM, QD
     Route: 055
  8. AMLODIPINE [Concomitant]
     Active Substance: AMLODIPINE BESYLATE
     Dosage: 10 MILLIGRAM, QD
     Route: 048
  9. KARDEGIC [Concomitant]
     Active Substance: ASPIRIN DL-LYSINE
     Dosage: 160 MILLIGRAM, QD
     Route: 048

REACTIONS (3)
  - Weaning failure [Recovered/Resolved]
  - Angioedema [Recovered/Resolved]
  - Swollen tongue [Recovered/Resolved]

NARRATIVE: CASE EVENT DATE: 20171127
